FAERS Safety Report 21335909 (Version 1)
Quarter: 2022Q3

REPORT INFORMATION
  Report Type: Spontaneous
  Country: JP (occurrence: JP)
  Receive Date: 20220915
  Receipt Date: 20220915
  Transmission Date: 20221027
  Serious: Yes (Hospitalization)
  Sender: FDA-Public Use
  Company Number: JP-ASTELLAS-2022JP013544

PATIENT
  Age: 53 Year
  Sex: Male

DRUGS (6)
  1. ZOLPIDEM TARTRATE [Suspect]
     Active Substance: ZOLPIDEM TARTRATE
     Indication: Depressive symptom
     Dosage: UNK UNK, UNKNOWN FREQ.
     Route: 048
  2. ZOLPIDEM TARTRATE [Suspect]
     Active Substance: ZOLPIDEM TARTRATE
     Indication: Anxiety
     Dosage: UNK UNK, UNKNOWN FREQ.
     Route: 048
  3. ETHYL LOFLAZEPATE [Suspect]
     Active Substance: ETHYL LOFLAZEPATE
     Indication: Depressive symptom
     Dosage: UNK UNK, UNKNOWN FREQ.
     Route: 048
  4. ETHYL LOFLAZEPATE [Suspect]
     Active Substance: ETHYL LOFLAZEPATE
     Indication: Anxiety
     Dosage: UNK UNK, UNKNOWN FREQ.
     Route: 048
  5. ETIZOLAM [Suspect]
     Active Substance: ETIZOLAM
     Indication: Depressive symptom
     Dosage: UNK UNK, UNKNOWN FREQ.
     Route: 048
  6. ETIZOLAM [Suspect]
     Active Substance: ETIZOLAM
     Indication: Anxiety
     Dosage: UNK UNK, UNKNOWN FREQ.
     Route: 048

REACTIONS (1)
  - Dysphagia [Recovering/Resolving]
